FAERS Safety Report 7532860-X (Version None)
Quarter: 2011Q2

REPORT INFORMATION
  Report Type: 
  Country: None (occurrence: None)
  Receive Date: 20110608
  Receipt Date: 20110603
  Transmission Date: 20111010
  Serious: Yes (Disabling, Other)
  Sender: FDA-Public Use
  Company Number: US-PFIZER INC-2011055532

PATIENT
  Sex: Male

DRUGS (10)
  1. TRAZODONE [Concomitant]
     Indication: DEPRESSION
     Dosage: 50-100 MG PER DAY
     Dates: start: 19980101
  2. OMEPRAZOLE [Concomitant]
     Indication: GASTROOESOPHAGEAL REFLUX DISEASE
     Dosage: UNK
     Dates: start: 20060101
  3. PAXIL [Concomitant]
     Indication: ANXIETY
  4. TRAZODONE [Concomitant]
     Indication: INSOMNIA
  5. SIMVASTATIN [Concomitant]
     Indication: BLOOD CHOLESTEROL INCREASED
     Dosage: UNK
     Dates: start: 20040101
  6. HYDROCHLOROTHIAZIDE [Concomitant]
     Indication: HYPERTENSION
     Dosage: UNK
     Dates: start: 20030101
  7. LISINOPRIL [Concomitant]
     Indication: HYPERTENSION
     Dosage: UNK
     Dates: start: 20040101
  8. CHANTIX [Suspect]
     Indication: SMOKING CESSATION THERAPY
     Dosage: 0.5-1 MG DOSE PACK; 1MG
     Dates: start: 20080523, end: 20080723
  9. PAXIL [Concomitant]
     Indication: DEPRESSION
     Dosage: 40 MG, 1X/DAY
     Dates: start: 19940101
  10. ACETYLSALICYLIC ACID [Concomitant]
     Indication: PAIN
     Dosage: UNK
     Dates: start: 20040101

REACTIONS (6)
  - ANXIETY [None]
  - DEPRESSION [None]
  - SUICIDAL IDEATION [None]
  - ALCOHOL ABUSE [None]
  - INSOMNIA [None]
  - DISTURBANCE IN ATTENTION [None]
